FAERS Safety Report 23474485 (Version 1)
Quarter: 2024Q1

REPORT INFORMATION
  Report Type: Report from Study
  Country: US (occurrence: US)
  Receive Date: 20240204
  Receipt Date: 20240204
  Transmission Date: 20240410
  Serious: Yes (Hospitalization, Other)
  Sender: FDA-Public Use
  Company Number: US-EXELIXIS-CABO-23063042

PATIENT
  Sex: Female

DRUGS (1)
  1. CABOMETYX [Suspect]
     Active Substance: CABOZANTINIB S-MALATE
     Indication: Renal cell carcinoma
     Dosage: 20 MG, QD
     Route: 048

REACTIONS (12)
  - Nausea [Unknown]
  - Vomiting [Unknown]
  - Anaemia [Unknown]
  - Melaena [Unknown]
  - Haemorrhage [Recovered/Resolved]
  - Inflammation [Unknown]
  - Erythema [Unknown]
  - Diarrhoea [Unknown]
  - Decreased appetite [Unknown]
  - Constipation [Unknown]
  - Taste disorder [Unknown]
  - Pain in extremity [Unknown]
